FAERS Safety Report 18203544 (Version 1)
Quarter: 2020Q3

REPORT INFORMATION
  Report Type: Spontaneous
  Country: FR (occurrence: FR)
  Receive Date: 20200827
  Receipt Date: 20200827
  Transmission Date: 20201103
  Serious: Yes (Disabling)
  Sender: FDA-Public Use
  Company Number: FR-MYLANLABS-2020M1073207

PATIENT
  Age: 55 Year
  Sex: Male
  Weight: 90 kg

DRUGS (1)
  1. NORADRENALINE MYLAN [Suspect]
     Active Substance: NOREPINEPHRINE\NOREPINEPHRINE BITARTRATE
     Indication: SHOCK
     Dosage: 0.3 ?G/KG/MN
     Route: 042
     Dates: start: 20200420, end: 20200425

REACTIONS (1)
  - Extremity necrosis [Recovered/Resolved with Sequelae]

NARRATIVE: CASE EVENT DATE: 20200426
